FAERS Safety Report 16356757 (Version 1)
Quarter: 2019Q2

REPORT INFORMATION
  Report Type: Spontaneous
  Country: US (occurrence: US)
  Receive Date: 20190418
  Receipt Date: 20190418
  Transmission Date: 20190711
  Serious: Yes (Hospitalization)
  Sender: FDA-Public Use
  Company Number: None

PATIENT
  Age: 37 Year
  Sex: Female
  Weight: 64 kg

DRUGS (3)
  1. GEMCITABINE HYDROCHLORIDE. [Suspect]
     Active Substance: GEMCITABINE HYDROCHLORIDE
     Dates: end: 20190403
  2. TAXOL [Suspect]
     Active Substance: PACLITAXEL
     Dates: end: 20190403
  3. CISPLATIN. [Suspect]
     Active Substance: CISPLATIN
     Dates: end: 20190130

REACTIONS (4)
  - Dehydration [None]
  - Syncope [None]
  - Hypotension [None]
  - Dizziness [None]

NARRATIVE: CASE EVENT DATE: 20190403
